FAERS Safety Report 7952009-9 (Version None)
Quarter: 2011Q4

REPORT INFORMATION
  Report Type: 
  Country: None (occurrence: None)
  Receive Date: 20111201
  Receipt Date: 20111124
  Transmission Date: 20120403
  Serious: Yes (Death)
  Sender: FDA-Public Use
  Company Number: JP-BRISTOL-MYERS SQUIBB COMPANY-16260614

PATIENT
  Age: 76 Year
  Sex: Male

DRUGS (3)
  1. ERBITUX [Suspect]
     Indication: COLORECTAL CANCER
     Dosage: DOSE REDUCED TO 250MG/M2.
     Route: 042
     Dates: start: 20111012
  2. IRINOTECAN HCL [Concomitant]
     Indication: COLORECTAL CANCER
     Route: 042
     Dates: start: 20111012
  3. TS-1 [Concomitant]
     Indication: COLORECTAL CANCER
     Route: 048
     Dates: start: 20111012

REACTIONS (1)
  - LOSS OF CONSCIOUSNESS [None]
